FAERS Safety Report 9717061 (Version 1)
Quarter: 2013Q4

REPORT INFORMATION
  Report Type: Spontaneous
  Country: US (occurrence: None)
  Receive Date: 20131125
  Receipt Date: 20131125
  Transmission Date: 20140711
  Serious: Yes (Hospitalization)
  Sender: FDA-Public Use
  Company Number: UTC-040889

PATIENT
  Age: 14 Year
  Sex: Female
  Weight: 59.1 kg

DRUGS (3)
  1. REMODULIN (10 MILLIGRAM/MILLILITERS, INJECTION FOR INFUSION) (TREPROSTINIL SODIUM) [Suspect]
     Indication: PULMONARY ARTERIAL HYPERTENSION
     Dosage: 270.72 UG/KG  (0.188 UG/KG, 1 IN 1 MIN), SUBCUTANEOUS
     Route: 058
     Dates: start: 20120716
  2. LETAIRIS (AMBRISENTAN) (TABLETS) [Concomitant]
  3. COUMADIN (WARFARIN) [Concomitant]

REACTIONS (1)
  - Infusion site infection [None]
